FAERS Safety Report 19702247 (Version 1)
Quarter: 2021Q3

REPORT INFORMATION
  Report Type: Spontaneous
  Country: CA (occurrence: CA)
  Receive Date: 20210814
  Receipt Date: 20210814
  Transmission Date: 20211014
  Serious: Yes (Hospitalization)
  Sender: FDA-Public Use
  Company Number: CA-TEVA-2021-CA-1941059

PATIENT
  Age: 88 Year
  Sex: Male

DRUGS (9)
  1. ACT LEVOFLOXACIN [Suspect]
     Active Substance: LEVOFLOXACIN
     Indication: CHRONIC OBSTRUCTIVE PULMONARY DISEASE
     Dosage: 250 MILLIGRAM DAILY;
     Route: 048
  2. ELIQUIS [Concomitant]
     Active Substance: APIXABAN
     Route: 065
  3. SALBUTAMOL SULFATE [Concomitant]
     Active Substance: ALBUTEROL SULFATE
     Route: 065
  4. ACETAMINOPHEN. [Concomitant]
     Active Substance: ACETAMINOPHEN
     Route: 065
  5. MIRTAZAPINE. [Concomitant]
     Active Substance: MIRTAZAPINE
     Route: 065
  6. METOPROLOL. [Concomitant]
     Active Substance: METOPROLOL
     Route: 065
  7. LEVOFLOXACIN. [Suspect]
     Active Substance: LEVOFLOXACIN
     Indication: CHRONIC OBSTRUCTIVE PULMONARY DISEASE
     Dosage: FREQUENCY  : ONCE
     Route: 048
  8. SYMBICORT 100 TURBUHALER [Concomitant]
     Route: 065
  9. VALSARTAN. [Concomitant]
     Active Substance: VALSARTAN
     Route: 065

REACTIONS (3)
  - Aortic aneurysm [Not Recovered/Not Resolved]
  - Aortic intramural haematoma [Not Recovered/Not Resolved]
  - Condition aggravated [Not Recovered/Not Resolved]
